FAERS Safety Report 25746475 (Version 2)
Quarter: 2025Q3

REPORT INFORMATION
  Report Type: Spontaneous
  Country: EU (occurrence: EU)
  Receive Date: 20250901
  Receipt Date: 20250908
  Transmission Date: 20251020
  Serious: Yes (Other)
  Sender: SANOFI AVENTIS
  Company Number: EU-SANOFI-02634282

PATIENT
  Age: 75 Year
  Sex: Female

DRUGS (2)
  1. TOUJEO [Suspect]
     Active Substance: INSULIN GLARGINE
     Dates: start: 2020
  2. CORTISONE [Concomitant]
     Active Substance: CORTISONE

REACTIONS (3)
  - Neoplasm malignant [Unknown]
  - Blood glucose increased [Unknown]
  - Product storage error [Unknown]
